FAERS Safety Report 9253547 (Version 3)
Quarter: 2013Q2

REPORT INFORMATION
  Report Type: Spontaneous
  Country: US (occurrence: US)
  Receive Date: 20130425
  Receipt Date: 20130514
  Transmission Date: 20140414
  Serious: No
  Sender: FDA-Public Use
  Company Number: US-BIOGENIDEC-2013BI036549

PATIENT
  Age: 67 Year
  Sex: Female

DRUGS (1)
  1. TYSABRI [Suspect]
     Indication: CROHN^S DISEASE
     Route: 042
     Dates: start: 20130418

REACTIONS (6)
  - Poor venous access [Recovered/Resolved]
  - Central venous catheterisation [Unknown]
  - Catheter site pain [Not Recovered/Not Resolved]
  - Vein disorder [Recovered/Resolved]
  - Blister [Unknown]
  - Infusion site extravasation [Unknown]
